FAERS Safety Report 4557974-8 (Version None)
Quarter: 2005Q1

REPORT INFORMATION
  Report Type: 
  Country: None (occurrence: None)
  Receive Date: 20050121
  Receipt Date: 20040324
  Transmission Date: 20050727
  Serious: No
  Sender: FDA-Public Use
  Company Number: US-BRISTOL-MYERS SQUIBB COMPANY-12543179

PATIENT
  Age: 42 Year
  Sex: Male
  Weight: 65 kg

DRUGS (4)
  1. SERZONE [Suspect]
     Dosage: 200 MG DAILY UP TO 600 MG DAILY
     Route: 048
     Dates: start: 20010213, end: 20010822
  2. WELLBUTRIN SR [Concomitant]
  3. MILK THISTLE [Concomitant]
  4. PAXIL [Concomitant]

REACTIONS (1)
  - ALANINE AMINOTRANSFERASE ABNORMAL [None]
